FAERS Safety Report 4426207-5 (Version None)
Quarter: 2004Q3

REPORT INFORMATION
  Report Type: 
  Country: None (occurrence: None)
  Receive Date: 20040811
  Receipt Date: 20040729
  Transmission Date: 20050211
  Serious: Yes (Other)
  Sender: FDA-Public Use
  Company Number: 2004225967US

PATIENT
  Age: 63 Year
  Sex: Female
  Weight: 49.4 kg

DRUGS (1)
  1. DETROL LA [Suspect]
     Indication: HYPERTONIC BLADDER
     Dosage: 2 MG BID ORAL
     Route: 048
     Dates: start: 19970101, end: 20040701

REACTIONS (19)
  - BLOOD URINE [None]
  - CARDIAC DISORDER [None]
  - CONSTIPATION [None]
  - CYSTITIS [None]
  - DRUG INEFFECTIVE [None]
  - DRY MOUTH [None]
  - DRY SKIN [None]
  - HEADACHE [None]
  - HEART RATE IRREGULAR [None]
  - HYPERTENSION [None]
  - INTRAOCULAR PRESSURE INCREASED [None]
  - KERATOCONJUNCTIVITIS SICCA [None]
  - NAUSEA [None]
  - PNEUMONIA [None]
  - PRURITUS [None]
  - RASH SCALY [None]
  - SKIN BURNING SENSATION [None]
  - SOMNOLENCE [None]
  - VISUAL DISTURBANCE [None]
